FAERS Safety Report 5809588-7 (Version None)
Quarter: 2008Q3

REPORT INFORMATION
  Report Type: 
  Country: None (occurrence: None)
  Receive Date: 20080709
  Receipt Date: 20080625
  Transmission Date: 20090109
  Serious: Yes (Other)
  Sender: FDA-Public Use
  Company Number: 2008US001669

PATIENT
  Age: 41 Year
  Sex: Male

DRUGS (5)
  1. PROGRAF [Suspect]
     Indication: RENAL TRANSPLANT
     Dosage: 6 MG,  UID/QD, ORAL
     Route: 048
  2. AMLODIPINE [Concomitant]
  3. METOPROLOL TARTRATE [Concomitant]
  4. TRIMETOPRIM    (TRIMETHOPRIM) [Concomitant]
  5. OMEPRAZOLE (OMEPRAZOLE SODIUM) [Concomitant]

REACTIONS (1)
  - INFLAMMATION [None]
